FAERS Safety Report 8841930 (Version 1)
Quarter: 2012Q4

REPORT INFORMATION
  Report Type: Spontaneous
  Country: US (occurrence: None)
  Receive Date: 20121015
  Receipt Date: 20121015
  Transmission Date: 20130627
  Serious: Yes (Hospitalization)
  Sender: FDA-Public Use
  Company Number: None

PATIENT
  Sex: Female
  Weight: 87.54 kg

DRUGS (5)
  1. GEMCITABINE [Suspect]
     Indication: UROTHELIAL CARCINOMA BLADDER
     Dosage: every 2 weeks x 3 cycles
     Dates: start: 20120712, end: 20120809
  2. CISPLATIN [Suspect]
     Indication: CARCINOMA
     Dosage: day 2 or 3 of cycle x 3
     Dates: start: 20120712, end: 20120809
  3. NEULASTA [Suspect]
     Indication: CARCINOMA
     Dosage: day 2 or 3 of cycle x 3
     Dates: start: 20120713
  4. NEULASTA [Suspect]
     Indication: CARCINOMA
     Dates: start: 20120811
  5. NEULASTA [Suspect]
     Indication: CARCINOMA
     Dates: start: 20120810

REACTIONS (2)
  - Pain in extremity [None]
  - Deep vein thrombosis [None]
